FAERS Safety Report 18314075 (Version 3)
Quarter: 2020Q4

REPORT INFORMATION
  Report Type: Report from Study
  Country: US (occurrence: US)
  Receive Date: 20200925
  Receipt Date: 20201028
  Transmission Date: 20210113
  Serious: Yes (Hospitalization)
  Sender: FDA-Public Use
  Company Number: US-VERTEX PHARMACEUTICALS-2020-018692

PATIENT
  Age: 8 Year
  Sex: Female
  Weight: 20 kg

DRUGS (24)
  1. ZOSYN [Suspect]
     Active Substance: PIPERACILLIN SODIUM\TAZOBACTAM SODIUM
     Indication: INFECTIVE PULMONARY EXACERBATION OF CYSTIC FIBROSIS
     Dosage: 100 MG/KG, TID
     Route: 042
     Dates: start: 20200902, end: 20200913
  2. MINOCYCLINE [Suspect]
     Active Substance: MINOCYCLINE HYDROCHLORIDE
     Indication: INFECTIVE PULMONARY EXACERBATION OF CYSTIC FIBROSIS
     Dosage: 50 MILLIGRAM, BID
     Route: 048
     Dates: start: 20200902, end: 20200913
  3. PULMOZYME [Concomitant]
     Active Substance: DORNASE ALFA
     Dosage: 1 AMPULE VIA NEBULIZER, QD
  4. LEVEMIR [Concomitant]
     Active Substance: INSULIN DETEMIR
     Dosage: 1 UNITS UNDER THE SKIN, PM
  5. FLORANEX [Concomitant]
     Active Substance: LACTOBACILLUS ACIDOPHILUS\LACTOBACILLUS DELBRUECKII SUBSP. BULGARICUS
     Dosage: UNK, BID
     Route: 048
  6. LIQUIGEN [Concomitant]
     Active Substance: MEDIUM-CHAIN TRIGLYCERIDES
     Dosage: 50 MILLILITER, QD
     Route: 048
  7. VENTOLIN HFA [Concomitant]
     Active Substance: ALBUTEROL SULFATE
     Dosage: 2 PUFFS, BID
  8. ZITHROMAX [Concomitant]
     Active Substance: AZITHROMYCIN DIHYDRATE
     Dosage: 1 TABLET ON MON, WED, FRI AM
  9. POLYETHYLENE GLYCOL 3350. [Concomitant]
     Active Substance: POLYETHYLENE GLYCOL 3350
     Dosage: 1 CAPFUL (17GM) IN 8 OUNCES OF JUICE OR WATER
  10. LEVOFLOXACIN. [Concomitant]
     Active Substance: LEVOFLOXACIN
     Dosage: 250 MILLIGRAM, QD
     Dates: start: 20200820, end: 20200902
  11. PEPCID [Concomitant]
     Active Substance: FAMOTIDINE
     Dosage: 10 MILLIGRAM, BID
     Route: 048
  12. CAYSTON [Concomitant]
     Active Substance: AZTREONAM
     Dosage: MIX 1 VIAL WITH 1 SALINE AMPULE
  13. BETHKIS [Concomitant]
     Active Substance: TOBRAMYCIN
     Dosage: 1 VIAL VIA HAND HELD NEBULIZER, BID
  14. PERIACTIN [Concomitant]
     Active Substance: CYPROHEPTADINE HYDROCHLORIDE
     Dosage: 4 MILLIGRAM, TID
     Route: 048
  15. KENALOG [Concomitant]
     Active Substance: TRIAMCINOLONE ACETONIDE
     Dosage: SMALL AMOUNT TOPICAL, BID
  16. ZYRTEC [Concomitant]
     Active Substance: CETIRIZINE HYDROCHLORIDE
     Dosage: 5 MILLIGRAM, PM
     Route: 048
  17. FLONASE [Concomitant]
     Active Substance: FLUTICASONE PROPIONATE
     Dosage: 1 SPRAY IN EACH NOSTRIL, BID
  18. PANCRELIPASE. [Concomitant]
     Active Substance: PANCRELIPASE
     Dosage: 2 CAPS WITH MEAL, 1 CAP WITH SNACK
     Route: 048
  19. TOBRAMYCIN. [Suspect]
     Active Substance: TOBRAMYCIN
     Indication: INFECTIVE PULMONARY EXACERBATION OF CYSTIC FIBROSIS
     Dosage: 10 MG/KG, QD
     Route: 042
     Dates: start: 20200902, end: 20200913
  20. SYMBICORT [Concomitant]
     Active Substance: BUDESONIDE\FORMOTEROL FUMARATE DIHYDRATE
     Dosage: 2 PUFFS, BID
  21. VIOKACE [Concomitant]
     Active Substance: PANCRELIPASE AMYLASE\PANCRELIPASE LIPASE\PANCRELIPASE PROTEASE
     Dosage: CRUSH 5 TABLETS, MIX WITH 3 PEPTAMEN JR 1.5
  22. SODIUM CHLORIDE. [Concomitant]
     Active Substance: SODIUM CHLORIDE
     Dosage: 1 AMPULE WITH NEBULIZER, BID
  23. TRIKAFTA [Suspect]
     Active Substance: ELEXACAFTOR\IVACAFTOR\TEZACAFTOR
     Indication: CYSTIC FIBROSIS
     Dosage: 1 ORANGE TABLET IN AM AND 1/2 BLUE TABLET IN PM
     Route: 048
     Dates: start: 20200905, end: 202009
  24. HUMALOG [Concomitant]
     Active Substance: INSULIN LISPRO
     Dosage: 1-5.5 UNITS UNDER THE SKIN PRN

REACTIONS (1)
  - SJS-TEN overlap [Recovering/Resolving]

NARRATIVE: CASE EVENT DATE: 20200914
